FAERS Safety Report 23014317 (Version 1)
Quarter: 2023Q4

REPORT INFORMATION
  Report Type: Spontaneous
  Country: US (occurrence: None)
  Receive Date: 20231002
  Receipt Date: 20231002
  Transmission Date: 20240109
  Serious: No
  Sender: FDA-Public Use
  Company Number: 2023A217074

PATIENT

DRUGS (1)
  1. FARXIGA [Suspect]
     Active Substance: DAPAGLIFLOZIN PROPANEDIOL
     Route: 048

REACTIONS (8)
  - Dysuria [Unknown]
  - Penile erythema [Unknown]
  - Anal erythema [Unknown]
  - Feeling abnormal [Unknown]
  - Pain [Unknown]
  - Penile pain [Unknown]
  - Product use issue [Unknown]
  - Drug ineffective [Unknown]
